FAERS Safety Report 7864345-5 (Version None)
Quarter: 2011Q4

REPORT INFORMATION
  Report Type: 
  Country: None (occurrence: None)
  Receive Date: 20111028
  Receipt Date: 20111020
  Transmission Date: 20120403
  Serious: Yes (Hospitalization)
  Sender: FDA-Public Use
  Company Number: US-B.I. PHARMACEUTICALS,INC./RIDGEFIELD-2011-BP-21161BP

PATIENT
  Age: 61 Year
  Sex: Male

DRUGS (11)
  1. ADVAIR DISKUS 100/50 [Concomitant]
  2. ATROVENT [Concomitant]
  3. NIASPAN [Concomitant]
     Dosage: 750 MG
  4. HYDRALAZINE HCL [Concomitant]
     Dosage: 60 MG
  5. PRADAXA [Suspect]
     Indication: ATRIAL FIBRILLATION
     Dosage: 300 MG
     Dates: start: 20110607, end: 20110829
  6. METFORMIN HCL [Concomitant]
  7. ALDACTONE [Concomitant]
     Dosage: 25 MG
  8. LIPITOR [Concomitant]
     Dosage: 20 MG
  9. LASIX [Concomitant]
     Dosage: 40 MG
  10. LISINOPRIL [Concomitant]
     Dosage: 40 MG
  11. COREG CR [Concomitant]
     Dosage: 80 MG

REACTIONS (2)
  - SCROTAL SWELLING [None]
  - HAEMATURIA [None]
